FAERS Safety Report 4743613-X (Version None)
Quarter: 2005Q3

REPORT INFORMATION
  Report Type: 
  Country: None (occurrence: None)
  Receive Date: 20050810
  Receipt Date: 20050810
  Transmission Date: 20060218
  Serious: Yes (Hospitalization)
  Sender: FDA-Public Use
  Company Number: None

PATIENT
  Sex: Male
  Weight: 79.5156 kg

DRUGS (1)
  1. COMPAZINE [Suspect]
     Indication: NAUSEA
     Dates: start: 20050511

REACTIONS (4)
  - CHILLS [None]
  - MENTAL STATUS CHANGES [None]
  - OXYGEN SATURATION ABNORMAL [None]
  - WHEEZING [None]
